FAERS Safety Report 15862850 (Version 1)
Quarter: 2019Q1

REPORT INFORMATION
  Report Type: Report from Study
  Country: RU (occurrence: RU)
  Receive Date: 20190124
  Receipt Date: 20190124
  Transmission Date: 20190417
  Serious: Yes (Other)
  Sender: FDA-Public Use
  Company Number: RU-ROCHE-1996055

PATIENT
  Age: 45 Year
  Sex: Female
  Weight: 87 kg

DRUGS (5)
  1. TIROZOL [Concomitant]
     Route: 048
     Dates: start: 20170907, end: 20170913
  2. TIROZOL [Concomitant]
     Indication: HYPERTHYROIDISM
     Route: 048
     Dates: start: 20170807, end: 20170817
  3. COBIMETINIB. [Suspect]
     Active Substance: COBIMETINIB
     Indication: MALIGNANT MELANOMA
     Dosage: ON DAYS 1 TO 21 ?DOSE OF LAST COBIMETINIB ADMINISTERED PRIOR TO SAE ONSET: 60 MG ON 06/SEP/2017
     Route: 048
     Dates: start: 20170413
  4. BLINDED ATEZOLIZUMAB [Suspect]
     Active Substance: ATEZOLIZUMAB
     Indication: MALIGNANT MELANOMA
     Dosage: DATE OF MOST RECENT DOSE OF BLINDED ATEZOLIZUMAB PRIOR TO SAE ONSET WAS 17/AUG/2017
     Route: 042
     Dates: start: 20170511
  5. VEMURAFENIB. [Suspect]
     Active Substance: VEMURAFENIB
     Indication: MALIGNANT MELANOMA
     Dosage: ON DAYS 22 TO 28?DATE OF MOST RECENT DOSE OF VEMURAFENIB PRIOR TO SAE ONSET: 06/SEP/2017?TOTAL NUMBE
     Route: 048
     Dates: start: 20170413

REACTIONS (1)
  - Hepatitis [Recovered/Resolved]

NARRATIVE: CASE EVENT DATE: 20170907
